FAERS Safety Report 12344228 (Version 3)
Quarter: 2020Q2

REPORT INFORMATION
  Report Type: Spontaneous
  Country: US (occurrence: US)
  Receive Date: 20160507
  Receipt Date: 20200415
  Transmission Date: 20200713
  Serious: Yes (Death, Other)
  Sender: FDA-Public Use
  Company Number: US-JNJFOC-20160330104

PATIENT
  Age: 36 Year
  Sex: Male

DRUGS (2)
  1. XARELTO [Suspect]
     Active Substance: RIVAROXABAN
     Indication: DEEP VEIN THROMBOSIS
     Dosage: 15 MG AND 20MG/DAILY
     Route: 048
     Dates: start: 20140402, end: 2014
  2. XARELTO [Suspect]
     Active Substance: RIVAROXABAN
     Dosage: 15 MG AND 20MG/DAILY
     Route: 048
     Dates: start: 2014, end: 20141006

REACTIONS (2)
  - Gingival bleeding [Unknown]
  - Upper gastrointestinal haemorrhage [Recovered/Resolved]

NARRATIVE: CASE EVENT DATE: 2014
